FAERS Safety Report 4839165-6 (Version None)
Quarter: 2005Q4

REPORT INFORMATION
  Report Type: 
  Country: None (occurrence: None)
  Receive Date: 20051129
  Receipt Date: 20050914
  Transmission Date: 20060501
  Serious: Yes (Death, Life-Threatening)
  Sender: FDA-Public Use
  Company Number: PHBS2005JP13545

PATIENT
  Age: 67 Year
  Sex: Male

DRUGS (6)
  1. FLUDARABINE PHOSPHATE [Concomitant]
  2. MELPHALAN [Concomitant]
  3. NEUPOGEN [Concomitant]
  4. SANDIMMUNE [Suspect]
     Indication: CORD BLOOD TRANSPLANT THERAPY
     Dosage: 3 MG/KG, UNK
     Route: 042
     Dates: start: 20041201, end: 20041206
  5. SANDIMMUNE [Suspect]
     Dosage: 1 MG, UNK
     Route: 042
     Dates: start: 20041206, end: 20041210
  6. IRRADIATION [Concomitant]
     Dosage: 2 GY

REACTIONS (7)
  - BLOOD BILIRUBIN INCREASED [None]
  - BLOOD CREATININE INCREASED [None]
  - HAEMODIALYSIS [None]
  - INFECTION [None]
  - PNEUMOCYSTIS JIROVECI PNEUMONIA [None]
  - RENAL FAILURE ACUTE [None]
  - THROMBOTIC MICROANGIOPATHY [None]
